FAERS Safety Report 17140917 (Version 1)
Quarter: 2019Q4

REPORT INFORMATION
  Report Type: Spontaneous
  Country: US (occurrence: US)
  Receive Date: 20191211
  Receipt Date: 20191211
  Transmission Date: 20200122
  Serious: Yes (Death, Other)
  Sender: FDA-Public Use
  Company Number: US-009507513-1912USA005230

PATIENT
  Age: 63 Year
  Sex: Male

DRUGS (3)
  1. ZOLPIDEM [Suspect]
     Active Substance: ZOLPIDEM TARTRATE
     Dosage: INGESTION AND PARENTERAL
  2. REMERON [Suspect]
     Active Substance: MIRTAZAPINE
     Dosage: INGESTION AND PARENTERAL
  3. INSULIN [Suspect]
     Active Substance: INSULIN NOS
     Dosage: INGESTION AND PARENTERAL

REACTIONS (2)
  - Suspected suicide [Fatal]
  - Cardio-respiratory arrest [Unknown]
